FAERS Safety Report 16699939 (Version 2)
Quarter: 2019Q4

REPORT INFORMATION
  Report Type: Spontaneous
  Country: US (occurrence: US)
  Receive Date: 20190813
  Receipt Date: 20191119
  Transmission Date: 20200122
  Serious: Yes (Hospitalization, Other)
  Sender: FDA-Public Use
  Company Number: US-JAZZ-2019-US-011019

PATIENT
  Age: 44 Year
  Sex: Female

DRUGS (7)
  1. ESZOPICLONE. [Suspect]
     Active Substance: ESZOPICLONE
     Indication: PRODUCT USED FOR UNKNOWN INDICATION
  2. XYREM [Suspect]
     Active Substance: SODIUM OXYBATE
     Indication: NARCOLEPSY
     Dosage: UNK
     Route: 048
  3. HCTZ [Suspect]
     Active Substance: HYDROCHLOROTHIAZIDE
     Indication: PRODUCT USED FOR UNKNOWN INDICATION
  4. AMPHETAMINE [Suspect]
     Active Substance: AMPHETAMINE
     Indication: PRODUCT USED FOR UNKNOWN INDICATION
     Dosage: 10 MG, TID
  5. PITOLISANT [Suspect]
     Active Substance: PITOLISANT
     Indication: PRODUCT USED FOR UNKNOWN INDICATION
  6. TIZANIDINE. [Suspect]
     Active Substance: TIZANIDINE
     Indication: PRODUCT USED FOR UNKNOWN INDICATION
  7. SUMATRIPTAN. [Suspect]
     Active Substance: SUMATRIPTAN
     Indication: MIGRAINE

REACTIONS (8)
  - Agitation [Recovered/Resolved]
  - Confusional state [Not Recovered/Not Resolved]
  - Irritability [Unknown]
  - Withdrawal syndrome [Recovered/Resolved]
  - Psychomotor hyperactivity [Recovering/Resolving]
  - Blood lactic acid increased [Recovering/Resolving]
  - Hypokalaemia [Recovering/Resolving]
  - Electrocardiogram QT interval abnormal [Recovering/Resolving]

NARRATIVE: CASE EVENT DATE: 20190729
